FAERS Safety Report 9101824 (Version 2)
Quarter: 2013Q1

REPORT INFORMATION
  Report Type: Spontaneous
  Country: JP (occurrence: JP)
  Receive Date: 20130218
  Receipt Date: 20130325
  Transmission Date: 20140127
  Serious: Yes (Life-Threatening, Hospitalization)
  Sender: FDA-Public Use
  Company Number: JP-GILEAD-2013-0069954

PATIENT
  Age: 75 Year
  Sex: Male

DRUGS (10)
  1. AMBRISENTAN [Suspect]
     Indication: PULMONARY ARTERIAL HYPERTENSION
     Dosage: .5IUAX PER DAY
     Route: 048
  2. FLOLAN [Suspect]
     Indication: PULMONARY ARTERIAL HYPERTENSION
     Dosage: 0.42 MG, QD
     Route: 042
     Dates: start: 20130119
  3. FLOLAN [Suspect]
     Dosage: UNK
     Route: 042
     Dates: end: 20130211
  4. SAMSCA [Concomitant]
     Indication: RIGHT VENTRICULAR FAILURE
     Dosage: 1IUAX PER DAY
     Route: 048
  5. SAMSCA [Concomitant]
     Dosage: 1IUAX PER DAY
     Route: 048
  6. WARFARIN [Concomitant]
     Route: 048
  7. REVATIO [Concomitant]
     Route: 048
  8. LANSOPRAZOLE [Concomitant]
     Route: 048
  9. FUROSEMIDE [Concomitant]
     Route: 048
  10. DOBUTAMINE HYDROCHLORIDE [Concomitant]

REACTIONS (2)
  - Platelet count decreased [Not Recovered/Not Resolved]
  - Gastric haemorrhage [Recovering/Resolving]
